FAERS Safety Report 6762825-7 (Version None)
Quarter: 2010Q2

REPORT INFORMATION
  Report Type: 
  Country: None (occurrence: None)
  Receive Date: 20100609
  Receipt Date: 20100601
  Transmission Date: 20101027
  Serious: Yes (Death)
  Sender: FDA-Public Use
  Company Number: CZ-TEVA-236803ISR

PATIENT
  Age: 56 Year
  Sex: Female

DRUGS (8)
  1. CARBOPLATIN [Suspect]
     Dates: start: 20040101
  2. DOXORUBICIN HCL [Suspect]
     Dates: start: 20000101
  3. VINCRISTINE [Suspect]
     Dates: start: 20000101
  4. ETOPOSIDE [Suspect]
     Dates: start: 20040101
  5. CYCLOPHOSPHAMIDE [Suspect]
     Dates: start: 20000101
  6. PREDNISONE [Suspect]
     Dates: start: 20000101
  7. RITUXIMAB [Suspect]
     Dates: start: 20040101
  8. IFOSFAMIDE [Suspect]
     Dates: start: 20040101

REACTIONS (2)
  - ACUTE HEPATIC FAILURE [None]
  - HEPATITIS B [None]
